FAERS Safety Report 7463806-0 (Version None)
Quarter: 2011Q2

REPORT INFORMATION
  Report Type: 
  Country: None (occurrence: None)
  Receive Date: 20110506
  Receipt Date: 20110411
  Transmission Date: 20111010
  Serious: Yes (Hospitalization, Other)
  Sender: FDA-Public Use
  Company Number: US-BAYER-2010-003987

PATIENT
  Age: 49 Year
  Sex: Female
  Weight: 50.794 kg

DRUGS (6)
  1. DORYX [Concomitant]
     Dosage: 100 MG, UNK
  2. YASMIN [Suspect]
     Indication: PRODUCT USED FOR UNKNOWN INDICATION
     Dosage: UNK
     Route: 048
     Dates: start: 20080401, end: 20090701
  3. YAZ [Suspect]
     Indication: PRODUCT USED FOR UNKNOWN INDICATION
     Dosage: UNK
     Route: 048
     Dates: start: 20080401, end: 20090701
  4. VITAMIN E [Concomitant]
  5. DROSPIRENONE AND ETHINYL ESTRADIOL [Suspect]
     Indication: PRODUCT USED FOR UNKNOWN INDICATION
     Dosage: UNK
     Route: 048
     Dates: start: 20080401, end: 20090701
  6. VITAMIN B [Concomitant]

REACTIONS (3)
  - THROMBOSIS [None]
  - PAIN [None]
  - PULMONARY EMBOLISM [None]
